FAERS Safety Report 5323826-9 (Version None)
Quarter: 2007Q2

REPORT INFORMATION
  Report Type: 
  Country: None (occurrence: None)
  Receive Date: 20070514
  Receipt Date: 20070503
  Transmission Date: 20071010
  Serious: Yes (Hospitalization)
  Sender: FDA-Public Use
  Company Number: B0469947A

PATIENT
  Age: 56 Year
  Sex: Male

DRUGS (6)
  1. SERETIDE [Suspect]
     Indication: ASTHMATIC CRISIS
     Dosage: 2PUFF PER DAY
     Route: 055
     Dates: start: 20061001, end: 20061001
  2. SYMBICORT [Suspect]
     Indication: ASTHMA
     Route: 048
     Dates: start: 20061001, end: 20061121
  3. KENACORT [Suspect]
     Indication: ASTHMA
     Dosage: 1INJ SEE DOSAGE TEXT
     Route: 030
     Dates: end: 20061121
  4. KALETRA [Suspect]
     Indication: HIV INFECTION
     Route: 048
     Dates: start: 20060630
  5. VENTOLIN [Concomitant]
     Indication: ASTHMA
     Route: 055
  6. TRUVADA [Concomitant]
     Indication: HIV INFECTION
     Dates: start: 20060630

REACTIONS (3)
  - CUSHING'S SYNDROME [None]
  - DRUG INTERACTION [None]
  - FACE OEDEMA [None]
